FAERS Safety Report 11591762 (Version 1)
Quarter: 2015Q4

REPORT INFORMATION
  Report Type: Spontaneous
  Country: US (occurrence: US)
  Receive Date: 20151005
  Receipt Date: 20151005
  Transmission Date: 20160304
  Serious: No
  Sender: FDA-Public Use
  Company Number: US-ASTRAZENECA-2015SE93908

PATIENT
  Sex: Female

DRUGS (1)
  1. NEXIUM [Suspect]
     Active Substance: ESOMEPRAZOLE MAGNESIUM
     Dosage: UNK
     Route: 048

REACTIONS (6)
  - Glossitis [Unknown]
  - Tongue disorder [Unknown]
  - Oral discomfort [Unknown]
  - Burning sensation [Unknown]
  - Glossodynia [Unknown]
  - Oral pain [Unknown]
